FAERS Safety Report 26186850 (Version 1)
Quarter: 2025Q4

REPORT INFORMATION
  Report Type: Report from Study
  Country: US (occurrence: US)
  Receive Date: 20251222
  Receipt Date: 20251222
  Transmission Date: 20260117
  Serious: Yes (Other)
  Sender: ALEXION PHARMACEUTICALS
  Company Number: US-ASTRAZENECA-202512NAM015085US

PATIENT
  Age: 47 Year
  Sex: Female

DRUGS (1)
  1. STRENSIQ [Suspect]
     Active Substance: ASFOTASE ALFA
     Indication: Phosphorus metabolism disorder
     Dosage: 2 MILLIGRAM/KILOGRAM, TIW
     Route: 065

REACTIONS (15)
  - Cerebellar stroke [Unknown]
  - Syncope [Unknown]
  - Arthralgia [Unknown]
  - Headache [Unknown]
  - Dry skin [Unknown]
  - Fatigue [Unknown]
  - Peripheral swelling [Unknown]
  - Blood albumin decreased [Unknown]
  - Fluid retention [Unknown]
  - Depression [Unknown]
  - Anxiety [Unknown]
  - Insomnia [Unknown]
  - Mood swings [Unknown]
  - Rheumatoid factor positive [Unknown]
  - Monocyte count increased [Unknown]

NARRATIVE: CASE EVENT DATE: 20250101
